FAERS Safety Report 14251102 (Version 1)
Quarter: 2017Q4

REPORT INFORMATION
  Report Type: Spontaneous
  Country: RU (occurrence: RU)
  Receive Date: 20171205
  Receipt Date: 20171205
  Transmission Date: 20180321
  Serious: Yes (Hospitalization)
  Sender: FDA-Public Use
  Company Number: RU-ASTRAZENECA-2017SF22672

PATIENT
  Age: 53 Year
  Sex: Female
  Weight: 95 kg

DRUGS (4)
  1. FORXIGA [Suspect]
     Active Substance: DAPAGLIFLOZIN
     Indication: TYPE 2 DIABETES MELLITUS
     Route: 048
  2. NORETHISTERONE [Concomitant]
     Active Substance: NORETHINDRONE
  3. TRAJENTA [Concomitant]
     Active Substance: LINAGLIPTIN
  4. CO PERINEVA [Concomitant]
     Active Substance: INDAPAMIDE\PERINDOPRIL ERBUMINE

REACTIONS (2)
  - Haemorrhage [Recovered/Resolved]
  - Ovarian cyst [Not Recovered/Not Resolved]

NARRATIVE: CASE EVENT DATE: 20171110
